FAERS Safety Report 4497575-3 (Version None)
Quarter: 2004Q4

REPORT INFORMATION
  Report Type: 
  Country: None (occurrence: None)
  Receive Date: 20041108
  Receipt Date: 20041028
  Transmission Date: 20050328
  Serious: Yes (Hospitalization)
  Sender: FDA-Public Use
  Company Number: JP-JNJFOC-20041008687

PATIENT
  Age: 84 Year
  Sex: Female

DRUGS (1)
  1. ITRIZOLE [Suspect]
     Route: 049
     Dates: start: 20040615, end: 20040716

REACTIONS (1)
  - THROMBOCYTOPENIA [None]
